FAERS Safety Report 9736833 (Version 1)
Quarter: 2013Q4

REPORT INFORMATION
  Report Type: Spontaneous
  Country: US (occurrence: US)
  Receive Date: 20131206
  Receipt Date: 20131206
  Transmission Date: 20140711
  Serious: No
  Sender: FDA-Public Use
  Company Number: US-BIOGENIDEC-2013BI098613

PATIENT
  Age: 50 Year
  Sex: Female
  Weight: 48 kg

DRUGS (20)
  1. TECFIDERA [Suspect]
     Indication: MULTIPLE SCLEROSIS
     Route: 048
  2. BACLOFEN [Concomitant]
  3. CLONAZEPAM [Concomitant]
  4. FOLIC ACID [Concomitant]
  5. MAGNESIUM [Concomitant]
  6. CALCIUM [Concomitant]
  7. IRON [Concomitant]
  8. NEXIUM [Concomitant]
  9. VENASTAT [Concomitant]
  10. B12 [Concomitant]
  11. FISH OIL [Concomitant]
  12. BIOTIN [Concomitant]
  13. DHEA [Concomitant]
  14. VITAMIN D [Concomitant]
  15. VITAMIN K [Concomitant]
  16. CO Q 10 [Concomitant]
  17. LEXAPRO [Concomitant]
  18. OSTEO BI FLEX [Concomitant]
  19. ESTROVAN [Concomitant]
  20. RESTASIS [Concomitant]

REACTIONS (2)
  - Rash [Unknown]
  - Pruritus [Unknown]
